FAERS Safety Report 14160928 (Version 2)
Quarter: 2017Q4

REPORT INFORMATION
  Report Type: Spontaneous
  Country: JP (occurrence: JP)
  Receive Date: 20171106
  Receipt Date: 20171117
  Transmission Date: 20180321
  Serious: Yes (Life-Threatening)
  Sender: FDA-Public Use
  Company Number: JP-SHIRE-JP201727859

PATIENT

DRUGS (20)
  1. FEIBA NF [Suspect]
     Active Substance: ANTI-INHIBITOR COAGULANT COMPLEX
     Dosage: 4000 IU, 1X/DAY:QD
     Route: 042
     Dates: start: 20170916, end: 20170923
  2. FULCALIQ [Concomitant]
     Active Substance: AMINO ACIDS\CARBOHYDRATES\ELECTROLYTES NOS\VITAMINS
     Indication: PRODUCT USED FOR UNKNOWN INDICATION
     Dosage: 0.99 KIT, 1X/DAY:QD
     Route: 065
  3. GLUCOSE [Concomitant]
     Active Substance: DEXTROSE
     Indication: PRODUCT USED FOR UNKNOWN INDICATION
     Dosage: 20 ML, 4X/DAY:QID, 50%
     Route: 065
  4. OMEPRAZOLE                         /00661202/ [Concomitant]
     Indication: PRODUCT USED FOR UNKNOWN INDICATION
     Dosage: 20 ML, 2X/DAY:BID
     Route: 065
  5. FULCALIQ [Concomitant]
     Active Substance: AMINO ACIDS\CARBOHYDRATES\ELECTROLYTES NOS\VITAMINS
     Dosage: 0.51 KIT, 1X/DAY:QD
     Route: 065
  6. ELEJECT [Concomitant]
     Indication: PRODUCT USED FOR UNKNOWN INDICATION
     Dosage: 0.99 TUBE, 1X/DAY:QD
     Route: 065
  7. FEIBA NF [Suspect]
     Active Substance: ANTI-INHIBITOR COAGULANT COMPLEX
     Dosage: 5000 IU, 2X/DAY:BID
     Route: 042
     Dates: start: 20171025, end: 20171026
  8. FEIBA NF [Suspect]
     Active Substance: ANTI-INHIBITOR COAGULANT COMPLEX
     Dosage: 5000 IU/DAY
     Route: 042
     Dates: start: 20171027, end: 20171030
  9. HUMULIN R [Concomitant]
     Active Substance: INSULIN HUMAN
     Dosage: 8.91 UNIT, 1X/DAY:QD
  10. FENTANYL CITRATE. [Concomitant]
     Active Substance: FENTANYL CITRATE
     Indication: PRODUCT USED FOR UNKNOWN INDICATION
     Dosage: 1 MG, 1X/DAY:QD
     Route: 065
     Dates: end: 20171024
  11. BROMHEXINE HYDROCHLORIDE [Concomitant]
     Active Substance: BROMHEXINE HYDROCHLORIDE
     Indication: PRODUCT USED FOR UNKNOWN INDICATION
     Dosage: 4 MG, 2X/DAY:BID
     Route: 065
  12. HUMULIN R [Concomitant]
     Active Substance: INSULIN HUMAN
     Indication: PRODUCT USED FOR UNKNOWN INDICATION
     Dosage: SLIDING-SCALE, 4X/DAY:QID
     Route: 065
  13. GLUCOSE [Concomitant]
     Active Substance: DEXTROSE
     Dosage: 500 ML, 1X/DAY:QD, 5%
     Route: 065
  14. FEIBA NF [Suspect]
     Active Substance: ANTI-INHIBITOR COAGULANT COMPLEX
     Indication: ACQUIRED HAEMOPHILIA
     Dosage: 6000 IU, 2X/DAY:BID
     Route: 042
     Dates: start: 20170908, end: 20170915
  15. FEIBA NF [Suspect]
     Active Substance: ANTI-INHIBITOR COAGULANT COMPLEX
     Dosage: 6000 IU, 2X/DAY:BID
     Route: 042
     Dates: start: 20171003, end: 20171024
  16. HUMULIN R [Concomitant]
     Active Substance: INSULIN HUMAN
     Dosage: 4.59 UNIT, 1X/DAY:QD
  17. MEROPENEM TRIHYDRATE [Concomitant]
     Active Substance: MEROPENEM
     Indication: PRODUCT USED FOR UNKNOWN INDICATION
     Dosage: 0.5 G, 2X/DAY:BID
     Route: 065
  18. PREDONINE                          /00016204/ [Concomitant]
     Active Substance: PREDNISOLONE ACETATE
     Indication: PRODUCT USED FOR UNKNOWN INDICATION
     Dosage: 60 MG, 1X/DAY:QD
     Route: 065
  19. DEXMEDETOMIDINE HYDROCHLORIDE. [Concomitant]
     Active Substance: DEXMEDETOMIDINE HYDROCHLORIDE
     Indication: PRODUCT USED FOR UNKNOWN INDICATION
     Dosage: 200 ?G, 2X/DAY:BID
     Route: 065
  20. TULOBUTEROL [Concomitant]
     Active Substance: TULOBUTEROL
     Indication: PRODUCT USED FOR UNKNOWN INDICATION
     Dosage: 2 MG, 1X/DAY:QD
     Route: 065

REACTIONS (1)
  - Fibrin degradation products increased [Unknown]

NARRATIVE: CASE EVENT DATE: 20171027
